FAERS Safety Report 8443421-2 (Version None)
Quarter: 2012Q2

REPORT INFORMATION
  Report Type: 
  Country: None (occurrence: None)
  Receive Date: 20120612
  Receipt Date: 20120612
  Transmission Date: 20120825
  Serious: No
  Sender: FDA-Public Use
  Company Number: None

PATIENT

DRUGS (2)
  1. HEPARIN SODIUM [Suspect]
     Dosage: NJECTABLE ; INTRAVENOUS SUBCUTA
     Route: 058
  2. HEPARIN SODIUM [Suspect]
     Dosage: INJECTABLE ; INTRAVENOUS ; VIAL 10 ML IN 1 VIAL

REACTIONS (4)
  - INCORRECT DOSE ADMINISTERED [None]
  - MEDICATION ERROR [None]
  - GASTROINTESTINAL HAEMORRHAGE [None]
  - COAGULATION TIME PROLONGED [None]
